FAERS Safety Report 21664532 (Version 1)
Quarter: 2022Q4

REPORT INFORMATION
  Report Type: Spontaneous
  Country: GR (occurrence: GR)
  Receive Date: 20221130
  Receipt Date: 20221130
  Transmission Date: 20230113
  Serious: Yes (Other)
  Sender: FDA-Public Use
  Company Number: None

PATIENT
  Age: 61 Year
  Sex: Female
  Weight: 70 kg

DRUGS (1)
  1. LIPITOR [Suspect]
     Active Substance: ATORVASTATIN CALCIUM
     Indication: Acute myocardial infarction
     Dosage: 40 MG ONCE A DAY (1X1)
     Route: 065
     Dates: start: 2016, end: 2016

REACTIONS (3)
  - Hepatitis C [Unknown]
  - Pruritus [Unknown]
  - Myalgia [Unknown]
